FAERS Safety Report 9444246 (Version 2)
Quarter: 2013Q3

REPORT INFORMATION
  Report Type: Report from Study
  Country: US (occurrence: US)
  Receive Date: 20130807
  Receipt Date: 20130903
  Transmission Date: 20140515
  Serious: Yes (Hospitalization, Other)
  Sender: FDA-Public Use
  Company Number: PHEH2013US012285

PATIENT
  Age: 83 Year
  Sex: Male

DRUGS (15)
  1. TASIGNA [Suspect]
     Indication: CHRONIC MYELOID LEUKAEMIA
     Dosage: 600 MG, DAILY
     Dates: start: 20120829, end: 201304
  2. ATENOLOL [Concomitant]
     Dosage: 25 MG, UNK
  3. ATORVASTATIN CALCIUM [Concomitant]
     Dosage: 40 MG, QD
     Route: 048
  4. ECOTRIN [Concomitant]
     Dosage: 81 MG, QD
     Route: 048
  5. ICLUSIG [Concomitant]
     Dosage: 45 MG, UNK
     Route: 048
  6. LASIX [Concomitant]
     Dosage: 60 MG, DAILY
     Route: 048
  7. PLAVIX [Concomitant]
     Dosage: 75 MG, QD
     Route: 048
  8. SYMBICORT [Concomitant]
     Dosage: 1 INHALATION BY MOUTH
     Route: 048
  9. THERAGRAN-M [Concomitant]
     Dosage: 1 DF, UNK
  10. BOSULIF [Concomitant]
     Dosage: 0.5 TABLET DAILY WITH FOOD
  11. DIGOXIN [Concomitant]
     Dosage: 125 UG, QD
     Route: 048
  12. ALBUTEROL [Concomitant]
     Dosage: 90 UG, BID
  13. MULTI VIT CHOICE [Concomitant]
     Dosage: 5 ML, QD
  14. MEGACE ES [Concomitant]
     Dosage: 5 ML, QD
     Route: 048
  15. METOPROLOL TARTRATE [Concomitant]
     Dosage: 25 MG, BID

REACTIONS (7)
  - Cardiac failure congestive [Recovering/Resolving]
  - Weight decreased [Recovering/Resolving]
  - Diarrhoea [Recovering/Resolving]
  - Local swelling [Recovering/Resolving]
  - Scrotal oedema [Recovering/Resolving]
  - Malaise [Recovering/Resolving]
  - Decreased appetite [Recovering/Resolving]
